FAERS Safety Report 22137834 (Version 1)
Quarter: 2023Q1

REPORT INFORMATION
  Report Type: Spontaneous
  Country: US (occurrence: None)
  Receive Date: 20230325
  Receipt Date: 20230325
  Transmission Date: 20230418
  Serious: No
  Sender: FDA-Public Use
  Company Number: 2023A057541

PATIENT
  Age: 19840 Day
  Sex: Female
  Weight: 108.9 kg

DRUGS (3)
  1. BUDESONIDE\FORMOTEROL\GLYCOPYRRONIUM [Suspect]
     Active Substance: BUDESONIDE\FORMOTEROL\GLYCOPYRRONIUM
     Indication: Chronic obstructive pulmonary disease
     Dosage: 160/9/4.8MCG, VIA INHALATION, 2 INHALATIONS.
     Route: 055
     Dates: start: 202207, end: 202210
  2. METHYLPREDNISOLONE [Concomitant]
     Active Substance: METHYLPREDNISOLONE
     Indication: Radiation pneumonitis
     Dosage: 40 MG
     Dates: start: 202210
  3. METHYLPREDNISOLONE [Concomitant]
     Active Substance: METHYLPREDNISOLONE
     Indication: Radiation pneumonitis
     Dosage: 40 MG
     Dates: start: 202210

REACTIONS (3)
  - Pruritus [Unknown]
  - Urticaria [Unknown]
  - Radiation pneumonitis [Unknown]

NARRATIVE: CASE EVENT DATE: 20230308
